FAERS Safety Report 16786140 (Version 2)
Quarter: 2019Q3

REPORT INFORMATION
  Report Type: Spontaneous
  Country: US (occurrence: US)
  Receive Date: 20190909
  Receipt Date: 20190926
  Transmission Date: 20191005
  Serious: Yes (Other)
  Sender: FDA-Public Use
  Company Number: US-PFIZER INC-2019385815

PATIENT
  Age: 40 Year
  Sex: Female
  Weight: 49.89 kg

DRUGS (2)
  1. ALPRAZOLAM. [Suspect]
     Active Substance: ALPRAZOLAM
     Indication: STRESS
     Dosage: 1 MG, 2X/DAY [DID 1 MG INSTEAD OF 2 MG TWICE PER DAY]
  2. ALPRAZOLAM. [Suspect]
     Active Substance: ALPRAZOLAM
     Dosage: 2 MG, 2X/DAY

REACTIONS (16)
  - Seizure [Unknown]
  - Memory impairment [Unknown]
  - Migraine [Unknown]
  - Emotional disorder [Unknown]
  - Drug dependence [Unknown]
  - Feeling abnormal [Unknown]
  - Road traffic accident [Unknown]
  - Anxiety [Unknown]
  - Nervous system disorder [Unknown]
  - Emotional distress [Unknown]
  - Schizophrenia [Unknown]
  - Loss of consciousness [Unknown]
  - Muscle spasms [Unknown]
  - Visual impairment [Unknown]
  - Nerve injury [Unknown]
  - Intentional product misuse [Unknown]
